FAERS Safety Report 17885520 (Version 1)
Quarter: 2020Q2

REPORT INFORMATION
  Report Type: Spontaneous
  Country: US (occurrence: US)
  Receive Date: 20200611
  Receipt Date: 20200611
  Transmission Date: 20200714
  Serious: No
  Sender: FDA-Public Use
  Company Number: US-TEVA-2020-US-1246227

PATIENT
  Sex: Female

DRUGS (3)
  1. TRI-LO-SPRINTEC [Suspect]
     Active Substance: ETHINYL ESTRADIOL\NORGESTIMATE
     Indication: ACNE
  2. CAFFEINE. [Suspect]
     Active Substance: CAFFEINE
     Route: 065
  3. TRI-LO-SPRINTEC [Suspect]
     Active Substance: ETHINYL ESTRADIOL\NORGESTIMATE
     Indication: CONTRACEPTION
     Route: 065

REACTIONS (7)
  - Mood swings [Unknown]
  - Product dose omission [Unknown]
  - Depression [Unknown]
  - Adverse event [Unknown]
  - Product substitution issue [Unknown]
  - Behaviour disorder [Unknown]
  - Inappropriate schedule of product administration [Unknown]
